FAERS Safety Report 24141363 (Version 1)
Quarter: 2024Q3

REPORT INFORMATION
  Report Type: Spontaneous
  Country: US (occurrence: None)
  Receive Date: 20240725
  Receipt Date: 20240725
  Transmission Date: 20241016
  Serious: No
  Sender: Public
  Company Number: None

PATIENT
  Age: 77 Year
  Sex: Male
  Weight: 83.25 kg

DRUGS (11)
  1. VYNDAMAX [Suspect]
     Active Substance: TAFAMIDIS
     Indication: Amyloidosis
     Dosage: OTHER QUANTITY : 1 CAPSULE(S);?
     Route: 048
  2. METHOCARBAMOL [Suspect]
     Active Substance: METHOCARBAMOL
  3. Urinary incontinence sphincter [Concomitant]
  4. VYNDAMAX [Concomitant]
     Active Substance: TAFAMIDIS
  5. METHANOL [Concomitant]
  6. ALDACTONE [Concomitant]
     Active Substance: SPIRONOLACTONE
  7. METOPROLOL [Concomitant]
  8. ELIQUIS [Concomitant]
     Active Substance: APIXABAN
  9. ALLOPURINOL [Concomitant]
  10. HYDROCODONE [Concomitant]
  11. TYLENOL [Concomitant]

REACTIONS (2)
  - Gastrointestinal motility disorder [None]
  - Fall [None]

NARRATIVE: CASE EVENT DATE: 20240418
